FAERS Safety Report 7389608-1 (Version None)
Quarter: 2011Q1

REPORT INFORMATION
  Report Type: 
  Country: None (occurrence: None)
  Receive Date: 20110323
  Receipt Date: 20110318
  Transmission Date: 20110831
  Serious: Yes (Hospitalization)
  Sender: FDA-Public Use
  Company Number: ZYD-11-AE-047

PATIENT
  Age: 58 Year
  Sex: Male

DRUGS (1)
  1. AMIODARONE [Suspect]
     Indication: VENTRICULAR TACHYCARDIA
     Dosage: 200-1600MG-DAILY-ORAL
     Route: 048

REACTIONS (3)
  - MENTAL STATUS CHANGES [None]
  - DIALYSIS [None]
  - HYPONATRAEMIA [None]
